FAERS Safety Report 17903825 (Version 1)
Quarter: 2020Q2

REPORT INFORMATION
  Report Type: Report from Study
  Country: US (occurrence: US)
  Receive Date: 20200616
  Receipt Date: 20200616
  Transmission Date: 20200714
  Serious: Yes (Hospitalization)
  Sender: FDA-Public Use
  Company Number: US-TEVA-2020-US-1510301

PATIENT
  Age: 89 Year
  Sex: Female

DRUGS (3)
  1. 5-AMINOSALICYLIC ACID [Suspect]
     Active Substance: MESALAMINE
     Indication: CROHN^S DISEASE
     Route: 065
  2. 5-AMINOSALICYLIC ACID [Suspect]
     Active Substance: MESALAMINE
     Indication: IMMUNOSUPPRESSANT DRUG THERAPY
  3. 5-AMINOSALICYLIC ACID [Suspect]
     Active Substance: MESALAMINE
     Indication: CROHN^S DISEASE

REACTIONS (1)
  - Cytomegalovirus colitis [Not Recovered/Not Resolved]
